FAERS Safety Report 6403540-9 (Version None)
Quarter: 2009Q4

REPORT INFORMATION
  Report Type: 
  Country: None (occurrence: None)
  Receive Date: 20091015
  Receipt Date: 20091015
  Transmission Date: 20100525
  Serious: Yes (Other)
  Sender: FDA-Public Use
  Company Number: None

PATIENT
  Age: 53 Year
  Sex: Female
  Weight: 67.1324 kg

DRUGS (1)
  1. ZOMETA [Suspect]
     Indication: METASTASES TO BONE
     Dosage: 1 X PER MONTH IV DRIP
     Route: 041
     Dates: start: 20081119, end: 20091008

REACTIONS (4)
  - ABASIA [None]
  - ARTHRALGIA [None]
  - BONE PAIN [None]
  - MALAISE [None]
